FAERS Safety Report 7028418-1 (Version None)
Quarter: 2010Q4

REPORT INFORMATION
  Report Type: 
  Country: None (occurrence: None)
  Receive Date: 20101005
  Receipt Date: 20100923
  Transmission Date: 20110411
  Serious: Yes (Other)
  Sender: FDA-Public Use
  Company Number: BR-PFIZER INC-2010121047

PATIENT
  Age: 41 Year
  Sex: Female
  Weight: 53 kg

DRUGS (7)
  1. FRONTAL [Suspect]
     Indication: INSOMNIA
     Dosage: 1 MG, 1X/DAY
     Route: 048
     Dates: start: 20040101, end: 20050101
  2. FRONTAL [Suspect]
     Indication: ANXIETY
  3. CARBOLITIUM [Suspect]
     Dosage: UNK
  4. AMITRIPTYLINE [Suspect]
     Dosage: UNK
  5. FLUOXETINE [Suspect]
     Dosage: UNK
  6. DIAZEPAM [Suspect]
     Dosage: 10 MG, UNK
  7. AMITRIL [Concomitant]
     Dosage: UNK
     Dates: start: 20050101

REACTIONS (17)
  - ANXIETY [None]
  - CONVULSION [None]
  - CRYING [None]
  - DRUG INEFFECTIVE [None]
  - FALL [None]
  - FEAR [None]
  - FEELING ABNORMAL [None]
  - FORMICATION [None]
  - HYPOACUSIS [None]
  - INSOMNIA [None]
  - LOSS OF CONSCIOUSNESS [None]
  - MALAISE [None]
  - MUSCLE TWITCHING [None]
  - NERVOUSNESS [None]
  - PAIN [None]
  - PANIC REACTION [None]
  - WEIGHT INCREASED [None]
